FAERS Safety Report 11307884 (Version 1)
Quarter: 2015Q3

REPORT INFORMATION
  Report Type: Spontaneous
  Country: US (occurrence: US)
  Receive Date: 20150724
  Receipt Date: 20150724
  Transmission Date: 20151125
  Serious: No
  Sender: FDA-Public Use
  Company Number: US-SUN PHARMACEUTICAL INDUSTRIES LTD-2014SUN01700

PATIENT

DRUGS (4)
  1. LETROZOLE TABS 2.5MG [Suspect]
     Active Substance: LETROZOLE
     Dosage: 2.5 MG, OD
     Route: 048
     Dates: start: 201404, end: 201406
  2. LETROZOLE TABS 2.5MG [Suspect]
     Active Substance: LETROZOLE
     Indication: INVASIVE DUCTAL BREAST CARCINOMA
     Dosage: 2.5 MG, OD
     Route: 048
     Dates: start: 201404, end: 201406
  3. BIOTIN [Concomitant]
     Active Substance: BIOTIN
     Indication: ALOPECIA
  4. VITAMIN SUPPLIMENTS [Concomitant]

REACTIONS (12)
  - Back pain [Recovered/Resolved]
  - Headache [Recovered/Resolved]
  - Rash [Recovered/Resolved]
  - Weight increased [Recovered/Resolved]
  - Alopecia [Recovered/Resolved]
  - Hot flush [Recovered/Resolved]
  - Musculoskeletal stiffness [Recovered/Resolved]
  - Depressed mood [Recovered/Resolved]
  - Arthralgia [Recovered/Resolved]
  - Pruritus [Recovered/Resolved]
  - Irritability [Recovered/Resolved]
  - Constipation [Recovered/Resolved]

NARRATIVE: CASE EVENT DATE: 201404
